FAERS Safety Report 19160031 (Version 2)
Quarter: 2022Q3

REPORT INFORMATION
  Report Type: Report from Study
  Country: JP (occurrence: JP)
  Receive Date: 20210421
  Receipt Date: 20220721
  Transmission Date: 20221027
  Serious: Yes (Hospitalization)
  Sender: FDA-Public Use
  Company Number: JP-SA-2021SA080858

PATIENT
  Age: 76 Year
  Sex: Female
  Weight: 35.7 kg

DRUGS (28)
  1. ISATUXIMAB [Suspect]
     Active Substance: ISATUXIMAB
     Indication: Plasma cell myeloma
     Dosage: 10 MG/KG, C1: DAYS 1, 8, 15, 22, 29; C2-4: DAYS 1, 15, 29; C5-17: DAYS 1, 15; C18 AND THEREAFTER: DA
     Route: 041
     Dates: start: 20190205
  2. BORTEZOMIB [Suspect]
     Active Substance: BORTEZOMIB
     Indication: Plasma cell myeloma
     Dosage: 1.3 MG/M2, DAYS 1, 4, 8, 11, 22, 25, 29, 32
     Route: 058
     Dates: start: 20190205, end: 20190726
  3. LENALIDOMIDE [Suspect]
     Active Substance: LENALIDOMIDE
     Indication: Plasma cell myeloma
     Dosage: 25 MG, C1-4: DAYS 1-21, 22-35; C5 AND THEREAFTER: DAYS 1-21
     Route: 048
     Dates: start: 20190205, end: 20200527
  4. LENALIDOMIDE [Suspect]
     Active Substance: LENALIDOMIDE
     Dosage: 25 MG, C1-4: DAYS 1-21, 22-35; C5 AND THEEAFTER: DAYS 1-21
     Route: 048
     Dates: start: 20200609, end: 20210303
  5. LENALIDOMIDE [Suspect]
     Active Substance: LENALIDOMIDE
     Dosage: 25 MG
     Route: 048
     Dates: start: 20210316, end: 20210405
  6. DEXAMETHASONE [Suspect]
     Active Substance: DEXAMETHASONE
     Indication: Plasma cell myeloma
     Dosage: 8 MG, QD
     Route: 043
     Dates: start: 20200218, end: 20210302
  7. DEXAMETHASONE [Suspect]
     Active Substance: DEXAMETHASONE
     Dosage: 8 MG, QD
     Route: 048
     Dates: start: 20200218, end: 20210302
  8. DEXAMETHASONE [Suspect]
     Active Substance: DEXAMETHASONE
     Dosage: 20 MG, QD
     Route: 041
     Dates: start: 20190205, end: 20200114
  9. DEXAMETHASONE [Suspect]
     Active Substance: DEXAMETHASONE
     Dosage: 20 MG, QD
     Route: 048
     Dates: start: 20190205, end: 20200114
  10. DEXAMETHASONE [Suspect]
     Active Substance: DEXAMETHASONE
     Dosage: 12 MG, QD
     Route: 041
     Dates: start: 20190121, end: 20200211
  11. DEXAMETHASONE [Suspect]
     Active Substance: DEXAMETHASONE
     Dosage: 12 MG, QD
     Route: 048
     Dates: start: 20190121, end: 20200211
  12. DEXAMETHASONE [Suspect]
     Active Substance: DEXAMETHASONE
     Dosage: 8 MG
     Route: 041
     Dates: start: 20210316
  13. DEXAMETHASONE [Suspect]
     Active Substance: DEXAMETHASONE
     Dosage: ACTUAL TOTAL DOSE: 8 MG
     Route: 048
     Dates: start: 20210323, end: 20210406
  14. ACYCLOVIR [Concomitant]
     Active Substance: ACYCLOVIR
     Indication: Antiviral prophylaxis
     Dosage: 200 MG, QD
     Route: 048
     Dates: start: 20190205
  15. MAGNESIUM SULFATE [Concomitant]
     Active Substance: MAGNESIUM SULFATE
     Indication: Constipation
     Dosage: 1500 MG, TID
     Route: 048
     Dates: start: 20190219
  16. BENZETHONIUM CHLORIDE [Concomitant]
     Active Substance: BENZETHONIUM CHLORIDE
     Indication: Prophylaxis
     Dosage: APPROPRIATE DOSE, 4 TIMES DAILY
     Route: 049
     Dates: start: 20190219
  17. FLUCONAZOLE [Concomitant]
     Active Substance: FLUCONAZOLE
     Indication: Infection prophylaxis
     Dosage: 100 MG, QD
     Route: 048
     Dates: start: 20191210
  18. SULFAMETHOXAZOLE\TRIMETHOPRIM [Concomitant]
     Active Substance: SULFAMETHOXAZOLE\TRIMETHOPRIM
     Indication: Prophylaxis
     Dosage: 0.5 DF, QD
     Route: 048
     Dates: start: 20191210
  19. PETROLATUM [Concomitant]
     Active Substance: PETROLATUM
     Indication: Dry skin prophylaxis
     Dosage: APPROPRIATE DOSE, AS NEEDED
     Route: 061
     Dates: start: 20200319
  20. LEVOFLOXACIN [Concomitant]
     Active Substance: LEVOFLOXACIN
     Indication: Infection prophylaxis
     Dosage: 500 MG, QD
     Route: 048
     Dates: start: 20200606, end: 20210310
  21. LEVOFLOXACIN [Concomitant]
     Active Substance: LEVOFLOXACIN
     Dosage: UNK
     Route: 048
     Dates: start: 20210313, end: 20211214
  22. KETOPROFEN [Concomitant]
     Active Substance: KETOPROFEN
     Indication: Neck pain
     Dosage: APPROPRIATE DOSE, AS NEEDED
     Route: 062
     Dates: start: 20201222, end: 20210331
  23. MOXIFLOXACIN HYDROCHLORIDE [Concomitant]
     Active Substance: MOXIFLOXACIN HYDROCHLORIDE
     Indication: Infection prophylaxis
     Dosage: APPROPRIATE DOSE, 4 TIMES DAILY
     Route: 047
     Dates: start: 20210308, end: 20210310
  24. PIRENOXINE [Concomitant]
     Active Substance: PIRENOXINE
     Indication: Product used for unknown indication
     Dosage: UNK
     Route: 047
     Dates: end: 20210307
  25. PARAFFIN [Concomitant]
     Active Substance: PARAFFIN
     Indication: Prophylaxis
     Dosage: UNK
     Route: 061
     Dates: start: 20200319
  26. ASPIRIN [Concomitant]
     Active Substance: ASPIRIN
     Indication: Prophylaxis
     Dosage: UNK
     Route: 048
     Dates: start: 20200605, end: 20210303
  27. MOXIFLOXACIN HYDROCHLORIDE [Concomitant]
     Active Substance: MOXIFLOXACIN HYDROCHLORIDE
     Indication: Prophylaxis
     Dosage: UNK
     Route: 047
     Dates: start: 20210308, end: 20210310
  28. LEVOFLOXACIN HEMIHYDRATE [Concomitant]
     Active Substance: LEVOFLOXACIN
     Indication: Prophylaxis
     Dosage: UNK
     Route: 047
     Dates: start: 20210310, end: 20210413

REACTIONS (1)
  - Cataract [Recovered/Resolved]

NARRATIVE: CASE EVENT DATE: 20210310
